FAERS Safety Report 5344970-6 (Version None)
Quarter: 2007Q2

REPORT INFORMATION
  Report Type: 
  Country: None (occurrence: None)
  Receive Date: 20070416
  Receipt Date: 20070103
  Transmission Date: 20071010
  Serious: No
  Sender: FDA-Public Use
  Company Number: 2007SP000029

PATIENT
  Age: 46 Year
  Sex: Female

DRUGS (3)
  1. LUNESTA [Suspect]
     Indication: INSOMNIA
     Dosage: 3 MG;  HS; ORAL
     Route: 048
     Dates: start: 20061213
  2. LEXAPRO [Suspect]
     Indication: ANXIETY
     Dosage: 10 MG;QD;ORAL
     Route: 048
     Dates: start: 20061213
  3. LEXAPRO [Suspect]
     Indication: DEPRESSION
     Dosage: 10 MG;QD;ORAL
     Route: 048
     Dates: start: 20061213

REACTIONS (1)
  - DYSGEUSIA [None]
